FAERS Safety Report 8943533 (Version 1)
Quarter: 2012Q4

REPORT INFORMATION
  Report Type: 
  Country: IT (occurrence: IT)
  Receive Date: 20121203
  Receipt Date: 20121203
  Transmission Date: 20130627
  Serious: Yes (Hospitalization)
  Sender: FDA-Public Use
  Company Number: PHHY2012IT109704

PATIENT
  Age: 37 Year
  Sex: Female

DRUGS (1)
  1. LORAZEPAM [Suspect]
     Indication: SUICIDE ATTEMPT
     Dosage: 20 DF, (total dose)
     Route: 048
     Dates: start: 20121116, end: 20121116

REACTIONS (2)
  - Poisoning [Recovering/Resolving]
  - Sopor [Recovering/Resolving]
